FAERS Safety Report 25634301 (Version 1)
Quarter: 2025Q3

REPORT INFORMATION
  Report Type: Spontaneous
  Country: CH (occurrence: CH)
  Receive Date: 20250801
  Receipt Date: 20250801
  Transmission Date: 20251020
  Serious: Yes (Other)
  Sender: OTSUKA
  Company Number: CH-LUNDBECK-DKLU4017448

PATIENT

DRUGS (1)
  1. BREXPIPRAZOLE [Suspect]
     Active Substance: BREXPIPRAZOLE
     Indication: Product used for unknown indication
     Route: 065

REACTIONS (3)
  - Oculogyric crisis [Unknown]
  - Blood creatine phosphokinase increased [Unknown]
  - Therapeutic drug monitoring [Unknown]
